FAERS Safety Report 9848014 (Version 1)
Quarter: 2014Q1

REPORT INFORMATION
  Report Type: Spontaneous
  Country: DE (occurrence: DE)
  Receive Date: 20140128
  Receipt Date: 20140128
  Transmission Date: 20141002
  Serious: Yes (Congenital Anomaly, Other)
  Sender: FDA-Public Use
  Company Number: DE-DRREDDYS-GER/GER/14/0037289

PATIENT
  Sex: 0

DRUGS (2)
  1. VENLAFAXINE [Suspect]
     Indication: PRODUCT USED FOR UNKNOWN INDICATION
     Route: 064
     Dates: start: 20101212, end: 20110208
  2. FEMIBION [Concomitant]
     Indication: PRODUCT USED FOR UNKNOWN INDICATION
     Route: 064
     Dates: start: 20110124, end: 20110311

REACTIONS (4)
  - Atrioventricular septal defect [Not Recovered/Not Resolved]
  - Congenital nose malformation [Unknown]
  - Hydrops foetalis [Not Recovered/Not Resolved]
  - Foetal exposure during pregnancy [Unknown]
